FAERS Safety Report 4340626-7 (Version None)
Quarter: 2004Q2

REPORT INFORMATION
  Report Type: 
  Country: None (occurrence: None)
  Receive Date: 20040414
  Receipt Date: 20040407
  Transmission Date: 20050107
  Serious: Yes (Other)
  Sender: FDA-Public Use
  Company Number: STA-AE-04-MTX-145

PATIENT
  Age: 55 Year
  Sex: Male

DRUGS (10)
  1. METHOTREXATE [Suspect]
  2. BLINDED THERAPY FOR ETANERCEPT (INJECTION) [Suspect]
     Indication: WEGENER'S GRANULOMATOSIS
     Dates: start: 20001001
  3. CYCLOPHOSPHAMIDE [Suspect]
  4. MULTIVITAMINS, PLAIN (MULTIVITAMINS, PLAIN) [Concomitant]
  5. PREDNISONE [Concomitant]
  6. MOMETASONE FUROATE [Concomitant]
  7. OXYCODONE AND ACETAMINOPHEN [Concomitant]
  8. FOLIC ACID [Concomitant]
  9. SULFAMETHOXAZOLE + TRIMETHOPRIM [Concomitant]
  10. CHOLESTYRAMINE RESIN (COLESTYRAMINE) [Concomitant]

REACTIONS (2)
  - BASAL CELL CARCINOMA [None]
  - RECURRENT CANCER [None]
